FAERS Safety Report 10240575 (Version 1)
Quarter: 2014Q2

REPORT INFORMATION
  Report Type: Spontaneous
  Country: US (occurrence: None)
  Receive Date: 20140613
  Receipt Date: 20140613
  Transmission Date: 20141212
  Serious: Yes (Hospitalization, Disabling)
  Sender: FDA-Public Use
  Company Number: None

PATIENT
  Age: 58 Year
  Sex: Male
  Weight: 72.58 kg

DRUGS (4)
  1. CIPROFLOXACIN [Suspect]
     Indication: BLOOD URINE PRESENT
     Route: 048
     Dates: start: 20140424, end: 20140515
  2. DILANTIN [Concomitant]
  3. DIVAL PROEX [Concomitant]
  4. CENTRUM SILVER [Concomitant]

REACTIONS (5)
  - Tendonitis [None]
  - Blister [None]
  - Musculoskeletal stiffness [None]
  - Musculoskeletal pain [None]
  - Neck pain [None]
